FAERS Safety Report 8990595 (Version 3)
Quarter: 2013Q1

REPORT INFORMATION
  Report Type: Report from Study
  Country: US (occurrence: US)
  Receive Date: 20121228
  Receipt Date: 20130325
  Transmission Date: 20140127
  Serious: Yes (Death, Hospitalization)
  Sender: FDA-Public Use
  Company Number: US-ROCHE-1172090

PATIENT
  Age: 65 Year
  Sex: Female

DRUGS (2)
  1. XOLAIR [Suspect]
     Indication: ASTHMA
     Route: 065
     Dates: start: 20080311
  2. NEXIUM [Concomitant]

REACTIONS (4)
  - Chronic obstructive pulmonary disease [Fatal]
  - Dyspnoea [Unknown]
  - Cough [Unknown]
  - Chest pain [Unknown]
